FAERS Safety Report 9548877 (Version 1)
Quarter: 2013Q3

REPORT INFORMATION
  Report Type: Spontaneous
  Country: US (occurrence: US)
  Receive Date: 20130924
  Receipt Date: 20130924
  Transmission Date: 20140515
  Serious: Yes (Death)
  Sender: FDA-Public Use
  Company Number: US-PFIZER INC-2013271131

PATIENT
  Age: 85 Year
  Sex: Male

DRUGS (1)
  1. SUTENT [Suspect]
     Indication: CONNECTIVE TISSUE NEOPLASM
     Dosage: 37.5 MG, DAILY
     Route: 048
     Dates: start: 20130820

REACTIONS (3)
  - Death [Fatal]
  - Fatigue [Unknown]
  - Off label use [Unknown]
